FAERS Safety Report 6478341-6 (Version None)
Quarter: 2009Q4

REPORT INFORMATION
  Report Type: 
  Country: None (occurrence: None)
  Receive Date: 20091207
  Receipt Date: 20091126
  Transmission Date: 20100525
  Serious: Yes (Death, Hospitalization)
  Sender: FDA-Public Use
  Company Number: SE-BAXTER-2009BH018404

PATIENT
  Age: 70 Year
  Sex: Female

DRUGS (9)
  1. ENDOXAN BAXTER [Suspect]
     Indication: BREAST CANCER RECURRENT
     Route: 042
     Dates: start: 20090901, end: 20090901
  2. EPIRUBICIN HYDROCHLORIDE [Suspect]
     Indication: BREAST CANCER RECURRENT
     Route: 042
     Dates: start: 20090901, end: 20090901
  3. FLUOROURACIL [Suspect]
     Indication: BREAST CANCER RECURRENT
     Route: 042
     Dates: start: 20090901, end: 20090901
  4. ENBREL [Suspect]
     Indication: RHEUMATOID ARTHRITIS
     Route: 058
     Dates: end: 20090825
  5. INSULIN ACTRAPID HUMAN [Concomitant]
     Indication: DIABETES MELLITUS
     Route: 065
  6. ARTROX [Concomitant]
     Indication: DRUG USE FOR UNKNOWN INDICATION
     Route: 065
  7. POSTAFEN [Concomitant]
     Indication: DRUG USE FOR UNKNOWN INDICATION
     Route: 065
  8. ACETAMINOPHEN [Concomitant]
     Indication: DRUG USE FOR UNKNOWN INDICATION
     Route: 065
  9. HALDOL [Concomitant]
     Indication: DRUG USE FOR UNKNOWN INDICATION
     Route: 065

REACTIONS (5)
  - MULTI-ORGAN FAILURE [None]
  - PANCYTOPENIA [None]
  - RESPIRATORY FAILURE [None]
  - SEPSIS [None]
  - SHOCK [None]
